FAERS Safety Report 6189534-X (Version None)
Quarter: 2009Q2

REPORT INFORMATION
  Report Type: 
  Country: None (occurrence: None)
  Receive Date: 20090514
  Receipt Date: 20090512
  Transmission Date: 20091009
  Serious: Yes (Hospitalization)
  Sender: FDA-Public Use
  Company Number: US-BIOGENIDEC-2009BI006689

PATIENT
  Sex: Female

DRUGS (1)
  1. TYSABRI [Suspect]
     Indication: MULTIPLE SCLEROSIS
     Route: 042
     Dates: start: 20080529, end: 20090201

REACTIONS (6)
  - ABASIA [None]
  - ANAEMIA [None]
  - CELLULITIS [None]
  - FAECES DISCOLOURED [None]
  - PNEUMONIA [None]
  - URINARY TRACT INFECTION [None]
